FAERS Safety Report 18257249 (Version 2)
Quarter: 2021Q1

REPORT INFORMATION
  Report Type: Spontaneous
  Country: US (occurrence: US)
  Receive Date: 20200911
  Receipt Date: 20210106
  Transmission Date: 20210419
  Serious: Yes (Death, Hospitalization, Other)
  Sender: FDA-Public Use
  Company Number: US-TEVA-2020-US-1826622

PATIENT
  Age: 84 Year
  Sex: Female

DRUGS (13)
  1. VALSARTAN AUROBINDO [Suspect]
     Active Substance: VALSARTAN
     Indication: BLOOD PRESSURE MEASUREMENT
     Dosage: 160 MILLIGRAM DAILY;
     Route: 048
     Dates: start: 20190313
  2. HYDROCHLOROTHIAZIDE. [Concomitant]
     Active Substance: HYDROCHLOROTHIAZIDE
     Dosage: 12.5 MILLIGRAM DAILY;
     Route: 048
     Dates: start: 20180610
  3. VALSARTAN NOVARTIS [Suspect]
     Active Substance: VALSARTAN
     Indication: BLOOD PRESSURE MEASUREMENT
     Dosage: 160 MILLIGRAM DAILY;
     Route: 048
     Dates: start: 20120811, end: 20150214
  4. VALSARTAN OHM LABORATORIES [Suspect]
     Active Substance: VALSARTAN
     Indication: BLOOD PRESSURE MEASUREMENT
     Dosage: 160 MILLIGRAM DAILY;
     Route: 048
     Dates: start: 20150316, end: 20150502
  5. TRAZODONE [Concomitant]
     Active Substance: TRAZODONE HYDROCHLORIDE
     Indication: DEPRESSION
     Dosage: 50 MILLIGRAM DAILY;
     Route: 048
     Dates: start: 20170607, end: 20190405
  6. ESCITALOPRAM [Concomitant]
     Active Substance: ESCITALOPRAM OXALATE
     Indication: DEPRESSION
     Dosage: 10 MILLIGRAM DAILY;
     Route: 048
     Dates: start: 20180124, end: 20180505
  7. VALSARTAN SOLCO [Suspect]
     Active Substance: VALSARTAN
     Indication: BLOOD PRESSURE MEASUREMENT
     Dosage: 160 MILLIGRAM DAILY;
     Route: 048
     Dates: start: 20170410, end: 20180611
  8. ATORVASTATIN [Concomitant]
     Active Substance: ATORVASTATIN
     Indication: HYPERLIPIDAEMIA
     Dosage: 40 MILLIGRAM DAILY;
     Route: 048
     Dates: start: 20170915, end: 20190405
  9. VALSARTAN ACTAVIS [Suspect]
     Active Substance: VALSARTAN
     Indication: BLOOD PRESSURE MEASUREMENT
     Dosage: 160 MILLIGRAM DAILY;
     Route: 048
     Dates: start: 20171126, end: 20180224
  10. MIRTAZAPINE. [Concomitant]
     Active Substance: MIRTAZAPINE
     Indication: DEPRESSION
     Dosage: 30 MILLIGRAM DAILY;
     Route: 048
     Dates: start: 20170518, end: 20190509
  11. VALSARTAN ALEMBIC [Suspect]
     Active Substance: VALSARTAN
     Indication: BLOOD PRESSURE MEASUREMENT
     Dosage: 160 MILLIGRAM DAILY;
     Route: 048
     Dates: start: 20180915, end: 20190315
  12. IBUPROFEN. [Concomitant]
     Active Substance: IBUPROFEN
     Indication: PAIN
     Dosage: 2400 MILLIGRAM DAILY;
     Route: 048
     Dates: start: 20171012, end: 20190428
  13. LOSARTAN. [Concomitant]
     Active Substance: LOSARTAN
     Indication: HYPERTENSION
     Dosage: 100 MILLIGRAM DAILY;
     Route: 048

REACTIONS (2)
  - Gastric cancer [Fatal]
  - Hepatic cancer metastatic [Fatal]
